FAERS Safety Report 8187056-8 (Version None)
Quarter: 2012Q1

REPORT INFORMATION
  Report Type: 
  Country: None (occurrence: None)
  Receive Date: 20120306
  Receipt Date: 20120306
  Transmission Date: 20120608
  Serious: Yes (Other)
  Sender: FDA-Public Use
  Company Number: JP-TEVA-320899ISR

PATIENT
  Age: 69 Year
  Sex: Male

DRUGS (7)
  1. BENDAMUSTINE HYDROCHLORIDE [Suspect]
     Dosage: CYCLE 4
     Dates: start: 20110825, end: 20110826
  2. TEPRENONE [Concomitant]
     Indication: GASTRITIS
     Dates: start: 20080916, end: 20110924
  3. DEXAMETHASONE ACETATE [Concomitant]
     Dosage: 16.5 MILLIGRAM;
  4. GOSHAJINKIGAN (HERBAL EXTRACT NOS) [Concomitant]
     Indication: HYPOAESTHESIA
     Dates: start: 20080916, end: 20110924
  5. LANSOPRAZOLE [Concomitant]
     Indication: PROPHYLAXIS
     Dates: start: 20080916, end: 20111224
  6. BENDAMUSTINE HYDROCHLORIDE [Suspect]
     Indication: MANTLE CELL LYMPHOMA
     Dosage: 120 MG/M2; CYCLE 1
     Route: 042
     Dates: start: 20110616, end: 20110617
  7. MECOBALAMIN [Concomitant]
     Indication: HYPOAESTHESIA
     Dates: start: 20080916, end: 20110924

REACTIONS (4)
  - BRONCHOPULMONARY ASPERGILLOSIS [None]
  - DECREASED APPETITE [None]
  - NAUSEA [None]
  - PNEUMOCYSTIS JIROVECI PNEUMONIA [None]
